FAERS Safety Report 7400370-6 (Version None)
Quarter: 2011Q2

REPORT INFORMATION
  Report Type: 
  Country: None (occurrence: None)
  Receive Date: 20110407
  Receipt Date: 20110401
  Transmission Date: 20111010
  Serious: Yes (Hospitalization)
  Sender: FDA-Public Use
  Company Number: JP-MERCK-1103USA01491

PATIENT
  Sex: Female

DRUGS (1)
  1. JANUVIA [Suspect]
     Indication: HYPERGLYCAEMIA
     Route: 048
     Dates: start: 20110101

REACTIONS (2)
  - HEPATITIS C [None]
  - LIVER DISORDER [None]
